FAERS Safety Report 20611995 (Version 1)
Quarter: 2022Q1

REPORT INFORMATION
  Report Type: Spontaneous
  Country: US (occurrence: US)
  Receive Date: 20220318
  Receipt Date: 20220318
  Transmission Date: 20220423
  Serious: No
  Sender: FDA-Public Use
  Company Number: US-BAUSCH-BL-2022-006692

PATIENT
  Age: 89 Year
  Sex: Female

DRUGS (2)
  1. LATANOPROST [Suspect]
     Active Substance: LATANOPROST
     Indication: Maculopathy
     Dosage: EVERY OTHER NIGHT, STARTED ABOUT 9-10 MONTHS AGO
     Route: 047
  2. LATANOPROST [Suspect]
     Active Substance: LATANOPROST
     Indication: Macular degeneration

REACTIONS (3)
  - Asthenopia [Unknown]
  - Instillation site irritation [Unknown]
  - Instillation site pain [Unknown]
